FAERS Safety Report 21179326 (Version 1)
Quarter: 2022Q3

REPORT INFORMATION
  Report Type: Spontaneous
  Country: US (occurrence: None)
  Receive Date: 20220805
  Receipt Date: 20220805
  Transmission Date: 20221027
  Serious: No
  Sender: FDA-Public Use
  Company Number: 2022A276333

PATIENT
  Age: 1051 Month
  Sex: Female
  Weight: 55.3 kg

DRUGS (1)
  1. LYNPARZA [Suspect]
     Active Substance: OLAPARIB
     Indication: Ovarian cancer
     Route: 048
     Dates: start: 20210615

REACTIONS (2)
  - Alopecia [Recovering/Resolving]
  - Hair disorder [Recovering/Resolving]

NARRATIVE: CASE EVENT DATE: 20210601
